FAERS Safety Report 4587973-1 (Version None)
Quarter: 2005Q1

REPORT INFORMATION
  Report Type: 
  Country: None (occurrence: None)
  Receive Date: 20050215
  Receipt Date: 20050201
  Transmission Date: 20050727
  Serious: Yes (Congenital Anomaly)
  Sender: FDA-Public Use
  Company Number: 2005-BP-01427BP

PATIENT
  Sex: Female

DRUGS (4)
  1. VIRAMUNE [Suspect]
     Indication: HIV INFECTION
     Dosage: 400 MG (200 MG), IU
     Route: 015
     Dates: start: 20040723, end: 20040902
  2. COMBIVIR [Suspect]
     Indication: HIV INFECTION
     Dosage: 600/300 MG (SEE TEXT, STRENGTH:  300/150), IU
     Route: 015
     Dates: start: 20040723, end: 20040902
  3. EPIVIR [Suspect]
     Indication: HIV INFECTION
     Dosage: 300 MG (300 MG), IU
     Route: 015
     Dates: start: 20040902, end: 20040919
  4. KALETRA [Suspect]
     Indication: HIV INFECTION
     Dosage: SEE TEXT (SEE TEXT, STRENGTH:  133/33 MG:  3 TABS Q 12 HOURS), IU
     Route: 015
     Dates: start: 20040902, end: 20040919

REACTIONS (2)
  - DRUG EXPOSURE DURING PREGNANCY [None]
  - POLYDACTYLY [None]
